FAERS Safety Report 7176338-4 (Version None)
Quarter: 2010Q4

REPORT INFORMATION
  Report Type: 
  Country: None (occurrence: None)
  Receive Date: 20101220
  Receipt Date: 20101216
  Transmission Date: 20110411
  Serious: No
  Sender: FDA-Public Use
  Company Number: US-PFIZER INC-2010174008

PATIENT
  Sex: Female

DRUGS (2)
  1. LYRICA [Suspect]
     Indication: MUSCLE SPASMS
     Dosage: 100 MG, 1X/DAY
     Route: 048
     Dates: start: 20101201
  2. LYRICA [Suspect]
     Indication: PRURITUS

REACTIONS (1)
  - EYE SWELLING [None]
